FAERS Safety Report 21260260 (Version 4)
Quarter: 2022Q3

REPORT INFORMATION
  Report Type: Spontaneous
  Country: US (occurrence: US)
  Receive Date: 20220826
  Receipt Date: 20220902
  Transmission Date: 20221026
  Serious: No
  Sender: FDA-Public Use
  Company Number: US-ViiV Healthcare Limited-84293

PATIENT

DRUGS (2)
  1. RILPIVIRINE [Suspect]
     Active Substance: RILPIVIRINE
     Indication: Product used for unknown indication
     Dosage: UNK UNK, Z, 600-MG/900-MG ON THE 2 MONTH DOSING, SCHEDULE ON MONTHS 1, 3, AND 5
     Route: 065
  2. CABOTEGRAVIR [Suspect]
     Active Substance: CABOTEGRAVIR
     Indication: Product used for unknown indication
     Dosage: UNK UNK, Z, 600-MG/900-MG ON THE 2 MONTH DOSING, SCHEDULE ON MONTHS 1, 3, AND 5
     Route: 065

REACTIONS (1)
  - Product use issue [Unknown]
